FAERS Safety Report 7947883-6 (Version None)
Quarter: 2011Q4

REPORT INFORMATION
  Report Type: 
  Country: None (occurrence: None)
  Receive Date: 20111125
  Receipt Date: 20111110
  Transmission Date: 20120403
  Serious: Yes (Hospitalization)
  Sender: FDA-Public Use
  Company Number: DSA_47574_2011

PATIENT
  Age: 84 Year
  Sex: Female

DRUGS (7)
  1. MIRTAZAPINE [Suspect]
     Indication: PRODUCT USED FOR UNKNOWN INDICATION
     Dosage: (15 MG, DAILY ORAL)
     Route: 048
     Dates: start: 20101001, end: 20110401
  2. HALDOL [Suspect]
     Indication: PRODUCT USED FOR UNKNOWN INDICATION
     Dosage: (5 DROPS/BID ORAL)
     Route: 048
     Dates: start: 20101001, end: 20110401
  3. EXELON [Concomitant]
  4. COVERSYL /00790702/ [Concomitant]
  5. ENALAPRIL MALEATE [Suspect]
     Indication: HYPERTENSION
     Dosage: 920 MG QD ORAL), (10 MG QD ORAL), (5 MG QD ORAL)
     Route: 048
     Dates: end: 20101012
  6. ENALAPRIL MALEATE [Suspect]
     Indication: HYPERTENSION
     Dosage: 920 MG QD ORAL), (10 MG QD ORAL), (5 MG QD ORAL)
     Route: 048
     Dates: start: 20101013, end: 20110415
  7. ENALAPRIL MALEATE [Suspect]
     Indication: HYPERTENSION
     Dosage: 920 MG QD ORAL), (10 MG QD ORAL), (5 MG QD ORAL)
     Route: 048
     Dates: start: 20110415, end: 20110527

REACTIONS (7)
  - PSYCHOMOTOR HYPERACTIVITY [None]
  - AGGRESSION [None]
  - HYPONATRAEMIA [None]
  - ANAEMIA [None]
  - SOMNOLENCE [None]
  - BLOOD GLUCOSE INCREASED [None]
  - ABNORMAL BEHAVIOUR [None]
